FAERS Safety Report 13528527 (Version 1)
Quarter: 2017Q2

REPORT INFORMATION
  Report Type: Not Available
  Country: None (occurrence: US)
  Receive Date: 20170509
  Receipt Date: 20170509
  Transmission Date: 20170830
  Serious: No
  Sender: FDA-Public Use
  Company Number: US-AKORN-57012

PATIENT
  Sex: Male

DRUGS (1)
  1. BRIMONIDINE TARTRATE OPHTHALMIC SOLUTION [Suspect]
     Active Substance: BRIMONIDINE TARTRATE

REACTIONS (4)
  - Heart rate decreased [None]
  - Cardiac pacemaker insertion [None]
  - Eye irritation [None]
  - Heart rate abnormal [None]
